FAERS Safety Report 21882054 (Version 1)
Quarter: 2023Q1

REPORT INFORMATION
  Report Type: Spontaneous
  Country: CN (occurrence: CN)
  Receive Date: 20230119
  Receipt Date: 20230119
  Transmission Date: 20230418
  Serious: Yes (Hospitalization, Other)
  Sender: FDA-Public Use
  Company Number: CN-SA-2023SA011351

PATIENT
  Age: 61 Year
  Sex: Male
  Weight: 86 kg

DRUGS (2)
  1. HEPARIN [Suspect]
     Active Substance: HEPARIN SODIUM
     Indication: Anticoagulant therapy
     Dosage: UNK
  2. ENOXAPARIN SODIUM [Suspect]
     Active Substance: ENOXAPARIN SODIUM
     Indication: Anticoagulant therapy
     Dosage: 4000 U, BID

REACTIONS (13)
  - Deep vein thrombosis [Recovered/Resolved]
  - Heparin-induced thrombocytopenia [Recovering/Resolving]
  - Peripheral coldness [Recovering/Resolving]
  - Cyanosis [Recovering/Resolving]
  - Skin plaque [Recovering/Resolving]
  - Epistaxis [Recovering/Resolving]
  - Mouth haemorrhage [Recovering/Resolving]
  - Eye haemorrhage [Recovering/Resolving]
  - Contusion [Recovering/Resolving]
  - Pyrexia [Recovering/Resolving]
  - Haemostasis [Recovering/Resolving]
  - Renal failure [Recovered/Resolved]
  - Renal injury [Recovered/Resolved]
